FAERS Safety Report 24577813 (Version 3)
Quarter: 2025Q1

REPORT INFORMATION
  Report Type: Spontaneous
  Country: US (occurrence: US)
  Receive Date: 20241104
  Receipt Date: 20250319
  Transmission Date: 20250409
  Serious: Yes (Other)
  Sender: NOVARTIS
  Company Number: US-002147023-NVSC2024US210628

PATIENT
  Age: 29 Year
  Sex: Female
  Weight: 50.8 kg

DRUGS (3)
  1. KESIMPTA [Suspect]
     Active Substance: OFATUMUMAB
     Indication: Product used for unknown indication
     Route: 065
     Dates: start: 20231001, end: 20240806
  2. KESIMPTA [Suspect]
     Active Substance: OFATUMUMAB
     Route: 065
     Dates: start: 20241106
  3. KESIMPTA [Suspect]
     Active Substance: OFATUMUMAB
     Route: 065
     Dates: end: 20250129

REACTIONS (4)
  - Habitual abortion [Recovered/Resolved]
  - Abortion spontaneous [Unknown]
  - Habitual abortion [Unknown]
  - Maternal exposure during pregnancy [Unknown]

NARRATIVE: CASE EVENT DATE: 20231001
